FAERS Safety Report 13428470 (Version 2)
Quarter: 2017Q2

REPORT INFORMATION
  Report Type: Spontaneous
  Country: US (occurrence: US)
  Receive Date: 20170411
  Receipt Date: 20170424
  Transmission Date: 20170830
  Serious: Yes (Other)
  Sender: FDA-Public Use
  Company Number: US-JAZZ-JPI-P-029488

PATIENT
  Age: 44 Year
  Sex: Female
  Weight: 56.36 kg

DRUGS (13)
  1. XYREM [Suspect]
     Active Substance: SODIUM OXYBATE
     Indication: SOMNOLENCE
  2. NORTRIPTYLINE [Concomitant]
     Active Substance: NORTRIPTYLINE
  3. METHIMAZOLE. [Concomitant]
     Active Substance: METHIMAZOLE
  4. XYREM [Suspect]
     Active Substance: SODIUM OXYBATE
     Indication: CATAPLEXY
     Dosage: 4.5 G, BID
     Route: 048
  5. RITALIN [Concomitant]
     Active Substance: METHYLPHENIDATE HYDROCHLORIDE
  6. CYMBALTA [Concomitant]
     Active Substance: DULOXETINE HYDROCHLORIDE
  7. ENALAPRIL [Concomitant]
     Active Substance: ENALAPRIL
  8. XYREM [Suspect]
     Active Substance: SODIUM OXYBATE
     Indication: NARCOLEPSY
     Dosage: UNK UNKNOWN, SINGLE
     Route: 048
     Dates: start: 200706
  9. NAPROXEN. [Concomitant]
     Active Substance: NAPROXEN
  10. DIAZEPAM. [Concomitant]
     Active Substance: DIAZEPAM
  11. FENTANYL. [Concomitant]
     Active Substance: FENTANYL
  12. NORCO [Concomitant]
     Active Substance: ACETAMINOPHEN\HYDROCODONE BITARTRATE
  13. CYCLOBENZAPRINE. [Concomitant]
     Active Substance: CYCLOBENZAPRINE

REACTIONS (9)
  - Musculoskeletal pain [Not Recovered/Not Resolved]
  - Condition aggravated [Not Recovered/Not Resolved]
  - Drug administration error [Unknown]
  - Rotator cuff syndrome [Unknown]
  - Blood pressure increased [Not Recovered/Not Resolved]
  - Dry mouth [Not Recovered/Not Resolved]
  - Therapeutic nerve ablation [Unknown]
  - Road traffic accident [Unknown]
  - Back disorder [Unknown]

NARRATIVE: CASE EVENT DATE: 200706
